FAERS Safety Report 9234214 (Version 1)
Quarter: 2013Q2

REPORT INFORMATION
  Report Type: Report from Study
  Country: DE (occurrence: DE)
  Receive Date: 20130416
  Receipt Date: 20130416
  Transmission Date: 20140414
  Serious: Yes (Death)
  Sender: FDA-Public Use
  Company Number: DE-ROCHE-1214566

PATIENT
  Sex: Female

DRUGS (4)
  1. TOCILIZUMAB [Suspect]
     Indication: RHEUMATOID ARTHRITIS
     Dosage: LAST DOSE PRIOR TO SAE: 18/MAR/2011
     Route: 042
     Dates: start: 200911, end: 20110318
  2. CONCOR [Concomitant]
     Route: 065
  3. APROVEL [Concomitant]
     Route: 065
  4. PREDNISOLON [Concomitant]
     Route: 065
     Dates: start: 200903

REACTIONS (1)
  - Glioblastoma multiforme [Fatal]
